FAERS Safety Report 9284138 (Version 1)
Quarter: 2013Q2

REPORT INFORMATION
  Report Type: Spontaneous
  Country: US (occurrence: US)
  Receive Date: 20130510
  Receipt Date: 20130510
  Transmission Date: 20140414
  Serious: Yes (Other)
  Sender: FDA-Public Use
  Company Number: CHPA2013US007513

PATIENT
  Age: 78 Year
  Sex: Female

DRUGS (4)
  1. EXCEDRIN EXTRA STRENGTH [Suspect]
     Indication: HEADACHE
     Dosage: 2 DF, UNK
     Route: 048
     Dates: start: 1998
  2. EXCEDRIN EXTRA STRENGTH [Suspect]
     Indication: MIGRAINE
  3. MORPHINE [Suspect]
     Indication: UPPER LIMB FRACTURE
     Dosage: UNK
     Dates: start: 1999
  4. KEFLEX /USA/ [Suspect]
     Indication: INFLUENZA
     Dosage: UNK
     Dates: start: 1999, end: 1999

REACTIONS (8)
  - Palpitations [Not Recovered/Not Resolved]
  - Hallucination [Recovered/Resolved]
  - Influenza [Recovered/Resolved]
  - Pyrexia [Recovered/Resolved]
  - Body temperature increased [Recovered/Resolved]
  - Blood potassium decreased [Recovered/Resolved]
  - Diarrhoea [Recovered/Resolved]
  - Thermal burn [Recovered/Resolved]
